FAERS Safety Report 25674898 (Version 2)
Quarter: 2025Q3

REPORT INFORMATION
  Report Type: Spontaneous
  Country: GB (occurrence: GB)
  Receive Date: 20250813
  Receipt Date: 20250819
  Transmission Date: 20251020
  Serious: Yes (Death)
  Sender: MYLAN
  Company Number: GB-MYLANLABS-2025M1068781

PATIENT
  Sex: Male
  Weight: 86 kg

DRUGS (3)
  1. CLOZARIL [Suspect]
     Active Substance: CLOZAPINE
     Indication: Schizophrenia
     Dosage: 400 MILLIGRAM, PM (ONCE PER NIGHT)
     Dates: start: 20010301
  2. CLOZARIL [Suspect]
     Active Substance: CLOZAPINE
     Dosage: 400 MILLIGRAM, PM (AT NIGHT)
     Dates: start: 20240125
  3. LOFEPRAMINE [Concomitant]
     Active Substance: LOFEPRAMINE
     Dosage: UNK, BID (70MG IN MORNING,140MG AT NIGHT)
     Dates: start: 20220914

REACTIONS (2)
  - Ischaemic stroke [Fatal]
  - Salivary hypersecretion [Unknown]
